FAERS Safety Report 10434603 (Version 2)
Quarter: 2014Q3

REPORT INFORMATION
  Report Type: Report from Study
  Country: JP (occurrence: JP)
  Receive Date: 20140905
  Receipt Date: 20140905
  Transmission Date: 20150326
  Serious: Yes (Hospitalization)
  Sender: FDA-Public Use
  Company Number: JP-ASTRAZENECA-2014SE65444

PATIENT
  Age: 84 Year
  Sex: Male
  Weight: 72 kg

DRUGS (4)
  1. ZOLADEX [Suspect]
     Active Substance: GOSERELIN ACETATE
     Indication: PROSTATE CANCER
     Dosage: 10.8 MG EVERY TWELVE WEEKS AS MAINTENANCE DOSE
     Route: 058
     Dates: start: 20140117
  2. ZOLADEX [Suspect]
     Active Substance: GOSERELIN ACETATE
     Indication: PROSTATE CANCER
     Route: 058
     Dates: start: 20131220, end: 20131220
  3. HERBESSER [Concomitant]
     Active Substance: DILTIAZEM HYDROCHLORIDE
     Indication: HYPERTENSION
     Route: 048
  4. TANATRIL [Concomitant]
     Active Substance: IMIDAPRIL
     Indication: HYPERTENSION
     Route: 048

REACTIONS (2)
  - Decreased appetite [Recovered/Resolved]
  - Dehydration [Recovered/Resolved]

NARRATIVE: CASE EVENT DATE: 20140813
